FAERS Safety Report 24772740 (Version 3)
Quarter: 2025Q1

REPORT INFORMATION
  Report Type: Spontaneous
  Country: US (occurrence: US)
  Receive Date: 20241225
  Receipt Date: 20250114
  Transmission Date: 20250408
  Serious: Yes (Hospitalization)
  Sender: ROCHE
  Company Number: US-ROCHE-10000161569

PATIENT
  Age: 95 Year
  Sex: Male

DRUGS (1)
  1. NUTROPIN AQ [Suspect]
     Active Substance: SOMATROPIN
     Indication: Product used for unknown indication
     Route: 065

REACTIONS (7)
  - Product dose omission issue [Unknown]
  - Product complaint [Unknown]
  - Pituitary tumour [Unknown]
  - Norovirus infection [Recovering/Resolving]
  - Device malfunction [Unknown]
  - Dementia [Unknown]
  - Amnesia [Unknown]

NARRATIVE: CASE EVENT DATE: 20241201
